FAERS Safety Report 8263133-8 (Version None)
Quarter: 2012Q2

REPORT INFORMATION
  Report Type: 
  Country: None (occurrence: None)
  Receive Date: 20120405
  Receipt Date: 20120323
  Transmission Date: 20120825
  Serious: Yes (Hospitalization)
  Sender: FDA-Public Use
  Company Number: DE-ELI_LILLY_AND_COMPANY-DE201203004097

PATIENT
  Age: 6 Year
  Sex: Male

DRUGS (3)
  1. STRATTERA [Suspect]
     Dosage: 25 MG, UNK
  2. STRATTERA [Suspect]
     Dosage: 18 MG, UNK
  3. STRATTERA [Suspect]
     Indication: ATTENTION DEFICIT/HYPERACTIVITY DISORDER
     Dosage: 10 MG, UNK
     Route: 048
     Dates: start: 20120101

REACTIONS (6)
  - FATIGUE [None]
  - BRONCHITIS [None]
  - PYREXIA [None]
  - HYPOTONIA [None]
  - TACHYCARDIA [None]
  - INFLUENZA [None]
